FAERS Safety Report 7138634-6 (Version None)
Quarter: 2010Q4

REPORT INFORMATION
  Report Type: 
  Country: None (occurrence: None)
  Receive Date: 20101201
  Receipt Date: 20101201
  Transmission Date: 20110411
  Serious: Yes (Hospitalization)
  Sender: FDA-Public Use
  Company Number: None

PATIENT
  Age: 61 Year
  Sex: Female
  Weight: 90.7194 kg

DRUGS (2)
  1. NEURONTIN [Suspect]
     Indication: NEURALGIA
     Dosage: 1 PILL 3 TIMES A DAY PO
     Route: 048
     Dates: start: 20100415, end: 20100730
  2. PROPOXYPHENE HCL AND ACETAMINOPHEN [Suspect]
     Indication: NEURALGIA
     Dosage: 1 PILL -4-6 HOURS- 1 BEFORE BED PO
     Route: 048
     Dates: start: 20100415, end: 20101128

REACTIONS (1)
  - ATRIAL FIBRILLATION [None]
